FAERS Safety Report 10227005 (Version 1)
Quarter: 2014Q2

REPORT INFORMATION
  Report Type: Report from Study
  Country: CA (occurrence: CA)
  Receive Date: 20140610
  Receipt Date: 20140610
  Transmission Date: 20141212
  Serious: Yes (Other)
  Sender: FDA-Public Use
  Company Number: CA-ROCHE-1414475

PATIENT
  Age: 56 Year
  Sex: Male

DRUGS (6)
  1. RITUXAN [Suspect]
     Indication: RHEUMATOID ARTHRITIS
     Dosage: FREQUENCY: DAY 1 AND 15
     Route: 042
     Dates: start: 20110317
  2. METHYLPREDNISOLONE [Concomitant]
     Indication: PREMEDICATION
     Route: 042
     Dates: start: 20110317
  3. DIPHENHYDRAMINE HCL [Concomitant]
     Indication: PREMEDICATION
     Route: 048
     Dates: start: 20110317
  4. ACETAMINOPHEN [Concomitant]
     Indication: PREMEDICATION
     Route: 048
     Dates: start: 20110317, end: 20130327
  5. ACETAMINOPHEN [Concomitant]
     Route: 048
     Dates: start: 20130828
  6. METHOTREXATE [Concomitant]
     Route: 065

REACTIONS (5)
  - Accident [Unknown]
  - Ankle fracture [Unknown]
  - Postoperative wound infection [Unknown]
  - Medical device site reaction [Unknown]
  - Wound secretion [Not Recovered/Not Resolved]
